FAERS Safety Report 7518988 (Version 4)
Quarter: 2013Q4

REPORT INFORMATION
  Report Type: Spontaneous
  Country: US (occurrence: US)
  Receive Date: 20100802
  Receipt Date: 20131227
  Transmission Date: 20140711
  Serious: Yes (Other)
  Sender: FDA-Public Use
  Company Number: US-BAYER-201029217NA

PATIENT
  Age: 22 Year
  Sex: Female
  Weight: 97.96 kg

DRUGS (4)
  1. YAZ [Suspect]
     Indication: MENSTRUAL CYCLE MANAGEMENT
     Dosage: UNK
  2. YAZ [Suspect]
     Indication: ORAL CONTRACEPTION
  3. YAZ [Suspect]
     Indication: POLYCYSTIC OVARIES
  4. ZOLOFT [Concomitant]

REACTIONS (6)
  - Cholelithiasis [Unknown]
  - Cholecystitis chronic [None]
  - Post cholecystectomy syndrome [Unknown]
  - Gastrointestinal disorder [Unknown]
  - Biliary colic [Unknown]
  - Off label use [None]
